FAERS Safety Report 4392377-0 (Version None)
Quarter: 2004Q3

REPORT INFORMATION
  Report Type: 
  Country: None (occurrence: None)
  Receive Date: 20040702
  Receipt Date: 20040309
  Transmission Date: 20050211
  Serious: Yes (Other)
  Sender: FDA-Public Use
  Company Number: 2004UW04455

PATIENT
  Age: 59 Year
  Sex: Female

DRUGS (5)
  1. CRESTOR [Suspect]
     Dosage: 10 MG PO
     Route: 048
     Dates: start: 20040226
  2. PROTONIX [Concomitant]
  3. ZYRTEC [Concomitant]
  4. MERIDIA [Concomitant]
  5. NASACORT AQ [Concomitant]

REACTIONS (3)
  - CHEILITIS [None]
  - DYSGEUSIA [None]
  - GLOSSODYNIA [None]
